FAERS Safety Report 8528556-8 (Version None)
Quarter: 2012Q3

REPORT INFORMATION
  Report Type: 
  Country: None (occurrence: None)
  Receive Date: 20120723
  Receipt Date: 20120712
  Transmission Date: 20120928
  Serious: Yes (Hospitalization)
  Sender: FDA-Public Use
  Company Number: US-BIOGENIDEC-2012BI025316

PATIENT
  Age: 55 Year
  Sex: Female

DRUGS (7)
  1. AVONEX [Concomitant]
     Indication: MULTIPLE SCLEROSIS
     Route: 030
     Dates: start: 20061101
  2. TYSABRI [Suspect]
     Route: 042
     Dates: start: 20120217, end: 20120217
  3. AVONEX [Concomitant]
     Route: 030
     Dates: start: 19961001, end: 20010719
  4. TYSABRI [Suspect]
     Indication: MULTIPLE SCLEROSIS
     Route: 042
     Dates: start: 20061106, end: 20111110
  5. AVONEX [Concomitant]
     Route: 030
     Dates: start: 19961001
  6. AVONEX [Concomitant]
     Route: 030
     Dates: start: 20061101
  7. AVONEX [Concomitant]
     Route: 030
     Dates: start: 19961101, end: 20020731

REACTIONS (5)
  - PYREXIA [None]
  - HYPERTONIC BLADDER [None]
  - GALLBLADDER DISORDER [None]
  - WEIGHT DECREASED [None]
  - FREQUENT BOWEL MOVEMENTS [None]
